FAERS Safety Report 9342051 (Version 3)
Quarter: 2013Q3

REPORT INFORMATION
  Report Type: Spontaneous
  Country: DK (occurrence: None)
  Receive Date: 20130606
  Receipt Date: 20130716
  Transmission Date: 20140515
  Serious: Yes (Other)
  Sender: FDA-Public Use
  Company Number: 1734743

PATIENT
  Age: 44 Year
  Sex: Female

DRUGS (14)
  1. GEMCITABINE HYDROCHLORIDE [Suspect]
     Indication: BREAST CANCER
  2. VINORELBINE TARTRATE [Suspect]
     Indication: PRODUCT USED FOR UNKNOWN INDICATION
  3. DOCETAXEL [Suspect]
     Indication: PRODUCT USED FOR UNKNOWN INDICATION
  4. EPIRUBICIN HYDROCHLORIDE [Suspect]
     Indication: PRODUCT USED FOR UNKNOWN INDICATION
  5. TRASTUZUMAB [Suspect]
     Indication: PRODUCT USED FOR UNKNOWN INDICATION
  6. CAPECITABINE [Suspect]
     Indication: PRODUCT USED FOR UNKNOWN INDICATION
  7. PACLITAXEL [Suspect]
     Indication: BREAST CANCER
  8. GOSERELIN ACETATE [Suspect]
     Indication: BREAST CANCER
  9. LETROZOL [Suspect]
     Indication: BREAST CANCER
  10. LAPATINIB [Suspect]
     Indication: BREAST CANCER
  11. TAMOXIFEN [Concomitant]
  12. PANTOPRAZOLE [Concomitant]
  13. MORPHINE SULFATE PENTAHYDRATE [Concomitant]
  14. ANTHRACYCLINES AND RELATED SUBSTANCES [Concomitant]

REACTIONS (4)
  - Pericarditis [None]
  - Disease progression [None]
  - Breast cancer [None]
  - Pleural effusion [None]
